FAERS Safety Report 19121191 (Version 1)
Quarter: 2021Q2

REPORT INFORMATION
  Report Type: Spontaneous
  Country: US (occurrence: US)
  Receive Date: 20210412
  Receipt Date: 20210412
  Transmission Date: 20210717
  Serious: Yes (Other)
  Sender: FDA-Public Use
  Company Number: None

PATIENT
  Age: 81 Year
  Sex: Male
  Weight: 81.8 kg

DRUGS (2)
  1. REVLIMID [Suspect]
     Active Substance: LENALIDOMIDE
     Indication: PLASMA CELL MYELOMA
     Route: 048
     Dates: start: 20201103
  2. DARATUMUMAB [Suspect]
     Active Substance: DARATUMUMAB
     Indication: PLASMA CELL MYELOMA
     Route: 058
     Dates: start: 20201103

REACTIONS (6)
  - Dysphagia [None]
  - Alcohol use [None]
  - Keratinising squamous cell carcinoma of nasopharynx [None]
  - Tongue ulceration [None]
  - Hypermetabolism [None]
  - Squamous cell carcinoma of the tongue [None]

NARRATIVE: CASE EVENT DATE: 20210324
